FAERS Safety Report 19078257 (Version 1)
Quarter: 2021Q1

REPORT INFORMATION
  Report Type: Spontaneous
  Country: US (occurrence: US)
  Receive Date: 20210330
  Receipt Date: 20210330
  Transmission Date: 20210420
  Serious: No
  Sender: FDA-Public Use
  Company Number: None

PATIENT
  Age: 30 Year
  Sex: Female
  Weight: 74.25 kg

DRUGS (1)
  1. HALO CAPSULE (IBUPROFEN, ONDANSETRON, FAMOTIDINE, CAFFEINE) [Suspect]
     Active Substance: CAFFEINE\FAMOTIDINE\IBUPROFEN\ONDANSETRON
     Dosage: ?          QUANTITY:1 CAPSULE(S);?

REACTIONS (4)
  - Circumstance or information capable of leading to medication error [None]
  - Product use complaint [None]
  - Incorrect dose administered by product [None]
  - Product complaint [None]

NARRATIVE: CASE EVENT DATE: 20210329
